FAERS Safety Report 5345567-4 (Version None)
Quarter: 2007Q2

REPORT INFORMATION
  Report Type: 
  Country: None (occurrence: None)
  Receive Date: 20070605
  Receipt Date: 20060607
  Transmission Date: 20071010
  Serious: No
  Sender: FDA-Public Use
  Company Number: US-ASTRAZENECA-2006UW11967

PATIENT
  Age: 58 Year
  Sex: Female
  Weight: 67.6 kg

DRUGS (5)
  1. PRILOSEC [Suspect]
     Indication: GASTROOESOPHAGEAL REFLUX DISEASE
     Route: 048
  2. DIFLUCAN [Concomitant]
  3. THYROID TAB [Concomitant]
     Route: 048
  4. MULTIVITAMIN [Concomitant]
  5. ESTRADIOL [Concomitant]
     Route: 061

REACTIONS (3)
  - DRUG INEFFECTIVE [None]
  - HYPERSENSITIVITY [None]
  - ILL-DEFINED DISORDER [None]
